FAERS Safety Report 9263388 (Version 1)
Quarter: 2013Q2

REPORT INFORMATION
  Report Type: Spontaneous
  Country: US (occurrence: US)
  Receive Date: 20130430
  Receipt Date: 20130430
  Transmission Date: 20140414
  Serious: No
  Sender: FDA-Public Use
  Company Number: US-ABBOTT-12P-163-0938310-00

PATIENT
  Age: 71 Year
  Sex: Female
  Weight: 80.36 kg

DRUGS (3)
  1. CREON [Suspect]
     Indication: PANCREATIC INSUFFICIENCY
     Dosage: 3 WITH EACH MEAL AND 1 WITH SNACKS
     Dates: end: 201112
  2. 21 UNKNOWN MEDICATIONS [Concomitant]
     Indication: PRODUCT USED FOR UNKNOWN INDICATION
  3. UNKNOWN INSULINS [Concomitant]
     Indication: DIABETES MELLITUS
     Dosage: 2 INSULINS 4 TO 5 TIMES A DAY

REACTIONS (2)
  - Asthenia [Not Recovered/Not Resolved]
  - Diarrhoea [Not Recovered/Not Resolved]
